FAERS Safety Report 7723038-5 (Version None)
Quarter: 2011Q3

REPORT INFORMATION
  Report Type: 
  Country: None (occurrence: None)
  Receive Date: 20110826
  Receipt Date: 20110817
  Transmission Date: 20111222
  Serious: Yes (Other)
  Sender: FDA-Public Use
  Company Number: PH-1187207

PATIENT
  Age: 1 Month
  Sex: Male

DRUGS (1)
  1. BSS [Suspect]
     Dosage: (200 ML INTRAOCULAR)
     Route: 031
     Dates: start: 20110715, end: 20110715

REACTIONS (7)
  - VITREOUS HAEMORRHAGE [None]
  - RETINAL TEAR [None]
  - CHOROIDAL DETACHMENT [None]
  - CHOROIDAL HAEMORRHAGE [None]
  - RETINAL DETACHMENT [None]
  - HYPOTONY OF EYE [None]
  - EYE OPERATION COMPLICATION [None]
